FAERS Safety Report 10623667 (Version 1)
Quarter: 2014Q4

REPORT INFORMATION
  Report Type: Spontaneous
  Country: None (occurrence: GB)
  Receive Date: 20141203
  Receipt Date: 20141203
  Transmission Date: 20150529
  Serious: Yes (Other)
  Sender: FDA-Public Use
  Company Number: GB-BAUSCH-BL-2014-009840

PATIENT
  Sex: Female

DRUGS (2)
  1. YELLOX 0.9 MG/ML EYE DROPS, SOLUTION [Suspect]
     Active Substance: BROMFENAC SODIUM
     Indication: PRODUCT USED FOR UNKNOWN INDICATION
     Route: 047
  2. DEXAMETHASONE SODIUM PHOSPHATE, NEOMYCIN SULFATE [Suspect]
     Active Substance: DEXAMETHASONE SODIUM PHOSPHATE\NEOMYCIN SULFATE
     Indication: PRODUCT USED FOR UNKNOWN INDICATION
     Route: 047

REACTIONS (5)
  - Anterior chamber cell [Recovered/Resolved]
  - Rebound effect [Recovered/Resolved]
  - Chorioretinitis [Recovered/Resolved]
  - Visual acuity reduced [Recovering/Resolving]
  - Vitreous opacities [Recovered/Resolved]
